FAERS Safety Report 4826947-X (Version None)
Quarter: 2005Q4

REPORT INFORMATION
  Report Type: 
  Country: None (occurrence: None)
  Receive Date: 20051114
  Receipt Date: 20051103
  Transmission Date: 20060501
  Serious: Yes (Hospitalization, Other)
  Sender: FDA-Public Use
  Company Number: SE-AVENTIS-200519686GDDC

PATIENT
  Age: 58 Year
  Sex: Male
  Weight: 99 kg

DRUGS (8)
  1. DOCETAXEL [Suspect]
     Indication: GASTRIC CANCER
     Route: 042
     Dates: start: 20050718, end: 20050720
  2. FLUOROURACIL [Suspect]
     Indication: GASTRIC CANCER
     Dates: start: 20050718, end: 20050720
  3. ISOVORIN [Suspect]
     Indication: GASTRIC CANCER
     Dates: start: 20050718, end: 20050720
  4. BETAPRED [Concomitant]
     Indication: ANTIEMETIC SUPPORTIVE CARE
     Route: 042
     Dates: start: 20050718, end: 20050718
  5. ZOFRAN [Concomitant]
     Indication: ANTIEMETIC SUPPORTIVE CARE
     Route: 042
     Dates: start: 20050718, end: 20050718
  6. PRIMPERAN INJ [Concomitant]
     Route: 048
     Dates: start: 20050716, end: 20050725
  7. ENALAPRIL [Concomitant]
     Indication: HYPERTENSION
     Route: 048
  8. LANSOPRAZOLE [Concomitant]
     Indication: GASTRITIS
     Route: 048

REACTIONS (6)
  - DIABETES MELLITUS [None]
  - DIARRHOEA [None]
  - FEBRILE NEUTROPENIA [None]
  - NEUTROPENIA [None]
  - ORAL CANDIDIASIS [None]
  - PYREXIA [None]
